FAERS Safety Report 16002841 (Version 1)
Quarter: 2019Q1

REPORT INFORMATION
  Report Type: Spontaneous
  Country: US (occurrence: US)
  Receive Date: 20190225
  Receipt Date: 20190225
  Transmission Date: 20190418
  Serious: No
  Sender: FDA-Public Use
  Company Number: US-SA-2019SA050159

PATIENT
  Sex: Female

DRUGS (1)
  1. PLAVIX [Suspect]
     Active Substance: CLOPIDOGREL BISULFATE
     Indication: ANTICOAGULANT THERAPY
     Dosage: 75 MG, QD, IN THE MORNING
     Route: 065
     Dates: start: 201710

REACTIONS (4)
  - Pharyngeal oedema [Unknown]
  - Swelling face [Unknown]
  - Gingival swelling [Not Recovered/Not Resolved]
  - Angiodermatitis [Not Recovered/Not Resolved]

NARRATIVE: CASE EVENT DATE: 20171001
